FAERS Safety Report 17568003 (Version 1)
Quarter: 2020Q1

REPORT INFORMATION
  Report Type: Spontaneous
  Country: ES (occurrence: ES)
  Receive Date: 20200320
  Receipt Date: 20200320
  Transmission Date: 20200409
  Serious: Yes (Other)
  Sender: FDA-Public Use
  Company Number: ES-ELI_LILLY_AND_COMPANY-ES202003005638

PATIENT
  Age: 70 Year
  Sex: Male

DRUGS (3)
  1. PEMETREXED. [Suspect]
     Active Substance: PEMETREXED
     Indication: LUNG ADENOCARCINOMA STAGE IV
     Dosage: UNK UNK, CYCLICAL
     Route: 065
  2. PEMBROLIZUMAB. [Suspect]
     Active Substance: PEMBROLIZUMAB
     Indication: LUNG ADENOCARCINOMA STAGE IV
     Dosage: UNK, CYCLICAL
     Route: 065
  3. CDDP [Suspect]
     Active Substance: CISPLATIN
     Indication: LUNG ADENOCARCINOMA STAGE IV
     Dosage: UNK, CYCLICAL
     Route: 065

REACTIONS (10)
  - Dyspnoea [Unknown]
  - Musculoskeletal discomfort [Unknown]
  - Asthenia [Unknown]
  - Off label use [Unknown]
  - Cough [Unknown]
  - Acute kidney injury [Unknown]
  - Joint swelling [Unknown]
  - Oliguria [Unknown]
  - Chest discomfort [Unknown]
  - Renal cyst [Unknown]

NARRATIVE: CASE EVENT DATE: 202002
